FAERS Safety Report 8726958 (Version 2)
Quarter: 2012Q4

REPORT INFORMATION
  Report Type: Report from Study
  Country: US (occurrence: US)
  Receive Date: 20120816
  Receipt Date: 20121003
  Transmission Date: 20130627
  Serious: Yes (Hospitalization, Other)
  Sender: FDA-Public Use
  Company Number: US-MPIJNJ-2012-02328

PATIENT
  Age: 70 Year
  Sex: Female
  Weight: 87.8 kg

DRUGS (39)
  1. VELCADE [Suspect]
     Indication: MANTLE CELL LYMPHOMA
     Dosage: 2.77 mg, Cyclic
     Route: 042
     Dates: start: 20111231
  2. VELCADE [Suspect]
     Dosage: 0.7 mg/m2, Cyclic
     Route: 042
  3. VELCADE [Suspect]
     Dosage: 0.7 mg/m2, Cyclic
     Route: 042
     Dates: start: 20120226
  4. VELCADE [Suspect]
     Dosage: 0.7 mg/m2, Cyclic
     Route: 042
     Dates: start: 20120319
  5. RITUXIMAB [Suspect]
     Indication: MANTLE CELL LYMPHOMA
     Dosage: 1 mg/m2, Cyclic
     Route: 042
  6. CYCLOPHOSPHAMIDE [Suspect]
     Indication: MANTLE CELL LYMPHOMA
     Route: 065
  7. VINCRISTINE [Suspect]
     Indication: MANTLE CELL LYMPHOMA
     Dosage: 2 mg, Cyclic
     Route: 042
  8. DOXORUBICIN [Suspect]
     Indication: MANTLE CELL LYMPHOMA
     Dosage: 50 mg/m2, UNK
     Route: 042
  9. DEXAMETHASONE [Suspect]
     Indication: MANTLE CELL LYMPHOMA
     Dosage: 40 mg, UNK
     Route: 048
  10. METHOTREXATE [Suspect]
     Indication: MANTLE CELL LYMPHOMA
     Route: 065
  11. CYTARABINE [Suspect]
     Indication: MANTLE CELL LYMPHOMA
     Dosage: 1.87 g, Cyclic
     Route: 042
  12. MESNEX [Suspect]
     Indication: MANTLE CELL LYMPHOMA
     Dosage: 600 mg/m2, qd
     Route: 042
  13. NEUPOGEN [Concomitant]
     Indication: PRODUCT USED FOR UNKNOWN INDICATION
     Dosage: 480 ?g, qd
     Route: 058
  14. CIPRO                              /00042702/ [Concomitant]
     Indication: PRODUCT USED FOR UNKNOWN INDICATION
     Dosage: 500 mg, bid
     Route: 048
  15. LOVENOX [Concomitant]
     Indication: DEEP VEIN THROMBOSIS
     Dosage: 120 mg, UNK
     Route: 058
     Dates: start: 20120330
  16. LOVENOX [Concomitant]
     Dosage: 120 mg, UNK
     Route: 058
     Dates: start: 20120329
  17. FLUCONAZOLE [Concomitant]
     Indication: PRODUCT USED FOR UNKNOWN INDICATION
     Dosage: 100 mg, qd
     Route: 048
  18. DIPHENHYDRAMINE [Concomitant]
     Indication: PREMEDICATION
     Route: 042
  19. ZOFRAN                             /00955301/ [Concomitant]
     Indication: NAUSEA
     Dosage: 8 mg, UNK
     Route: 048
  20. ZOFRAN                             /00955301/ [Concomitant]
     Indication: VOMITING
     Dosage: 8 mg, UNK
     Route: 042
     Dates: start: 20120329
  21. PREDNISOLONE ACETATE [Concomitant]
     Indication: EYE DISORDER
     Dosage: 2 Gtt, UNK
     Route: 047
     Dates: start: 20120330
  22. STOMATOLOGICALS, MOUTH PREPARATIONS [Concomitant]
     Indication: DENTAL DISORDER PROPHYLAXIS
     Dosage: 10 ml, UNK
     Route: 048
  23. SENNOSIDES A+B [Concomitant]
     Indication: CONSTIPATION
     Dosage: UNK
     Dates: start: 20120331
  24. VALTREX [Concomitant]
     Indication: ANTIVIRAL PROPHYLAXIS
     Dosage: 500 mg, qd
     Route: 048
     Dates: start: 20120329
  25. MORPHINE [Concomitant]
     Indication: PRODUCT USED FOR UNKNOWN INDICATION
     Dosage: 2 mg, UNK
     Route: 042
     Dates: start: 20120329
  26. POTASSIUM CHLORIDE [Concomitant]
     Indication: PRODUCT USED FOR UNKNOWN INDICATION
     Dosage: 8 mEq, UNK
     Dates: start: 20120329
  27. SODIUM CHLORIDE [Concomitant]
     Indication: PRODUCT USED FOR UNKNOWN INDICATION
     Dosage: 1000 mg, UNK
     Dates: start: 20120329
  28. SODIUM CHLORIDE [Concomitant]
     Dosage: 1000 ml, UNK
     Dates: start: 20120330
  29. SODIUM CHLORIDE [Concomitant]
     Dosage: 10 ml, UNK
     Dates: start: 20120330
  30. SODIUM CHLORIDE [Concomitant]
     Dosage: 10 ml, UNK
     Dates: start: 20120401
  31. TRAMADOL [Concomitant]
     Indication: PRODUCT USED FOR UNKNOWN INDICATION
     Dosage: 50 mg, UNK
     Route: 048
     Dates: start: 20120329
  32. NYSTATIN [Concomitant]
     Indication: PRODUCT USED FOR UNKNOWN INDICATION
     Dosage: 40000 IU, UNK
     Route: 049
     Dates: start: 20120330
  33. SODIUM BICARBONATE [Concomitant]
     Indication: PRODUCT USED FOR UNKNOWN INDICATION
     Dosage: UNK
     Route: 049
     Dates: start: 20120330
  34. HEPARIN [Concomitant]
     Indication: PRODUCT USED FOR UNKNOWN INDICATION
     Dosage: 200 IU, UNK
     Route: 042
     Dates: start: 20120401
  35. SENOKOT S [Concomitant]
     Indication: PRODUCT USED FOR UNKNOWN INDICATION
  36. LEUCOVORIN /00566701/ [Concomitant]
     Indication: PRODUCT USED FOR UNKNOWN INDICATION
     Dosage: 50 mg, UNK
     Route: 048
  37. LEUCOVORIN /00566701/ [Concomitant]
     Dosage: 15 mg, UNK
  38. ALLOPURINOL [Concomitant]
     Indication: PRODUCT USED FOR UNKNOWN INDICATION
     Dosage: 300 mg, UNK
     Route: 048
  39. MEPERIDINE                         /00016301/ [Concomitant]
     Indication: PRODUCT USED FOR UNKNOWN INDICATION
     Dosage: 25 mg, UNK
     Route: 042

REACTIONS (3)
  - Peripheral sensory neuropathy [Recovering/Resolving]
  - Pyrexia [Recovered/Resolved]
  - Urinary tract infection [Recovered/Resolved]
